FAERS Safety Report 18203658 (Version 2)
Quarter: 2021Q1

REPORT INFORMATION
  Report Type: Report from Study
  Country: US (occurrence: US)
  Receive Date: 20200827
  Receipt Date: 20210306
  Transmission Date: 20210419
  Serious: Yes (Other)
  Sender: FDA-Public Use
  Company Number: NVSC2020US236853

PATIENT
  Sex: Female
  Weight: 46.27 kg

DRUGS (1)
  1. PIQRAY [Suspect]
     Active Substance: ALPELISIB
     Indication: BREAST CANCER STAGE IV
     Dosage: 300 MG, BID (2 X 150 MG)
     Route: 048

REACTIONS (5)
  - Malignant neoplasm progression [Unknown]
  - Diarrhoea [Unknown]
  - Breast cancer stage IV [Unknown]
  - Weight decreased [Unknown]
  - Product use complaint [Unknown]
